FAERS Safety Report 15232189 (Version 1)
Quarter: 2018Q3

REPORT INFORMATION
  Report Type: Spontaneous
  Country: US (occurrence: US)
  Receive Date: 20180802
  Receipt Date: 20180802
  Transmission Date: 20181010
  Serious: Yes (Other)
  Sender: FDA-Public Use
  Company Number: US-PFIZER INC-2018303710

PATIENT
  Sex: Female

DRUGS (2)
  1. LETROZOLE. [Suspect]
     Active Substance: LETROZOLE
     Dosage: UNK
     Dates: start: 2015
  2. IBRANCE [Suspect]
     Active Substance: PALBOCICLIB
     Dosage: UNK
     Dates: start: 2015

REACTIONS (5)
  - Fatigue [Unknown]
  - Asthenia [Unknown]
  - Nodule [Unknown]
  - Pulmonary thrombosis [Unknown]
  - Scar [Unknown]

NARRATIVE: CASE EVENT DATE: 201708
